FAERS Safety Report 24839748 (Version 1)
Quarter: 2025Q1

REPORT INFORMATION
  Report Type: Spontaneous
  Country: CA (occurrence: CA)
  Receive Date: 20250114
  Receipt Date: 20250114
  Transmission Date: 20250408
  Serious: Yes (Congenital Anomaly, Other)
  Sender: CSL BEHRING
  Company Number: CA-BEH-2025191750

PATIENT
  Sex: Male

DRUGS (1)
  1. HUMAN IMMUNOGLOBULIN G [Suspect]
     Active Substance: HUMAN IMMUNOGLOBULIN G
     Indication: Foetal exposure timing unspecified
     Route: 064

REACTIONS (1)
  - Cerebral ventricle dilatation [Unknown]
